FAERS Safety Report 12717876 (Version 1)
Quarter: 2016Q3

REPORT INFORMATION
  Report Type: Spontaneous
  Country: AU (occurrence: AU)
  Receive Date: 20160906
  Receipt Date: 20160906
  Transmission Date: 20161109
  Serious: Yes (Other)
  Sender: FDA-Public Use
  Company Number: AU-PFIZER INC-2016417027

PATIENT
  Age: 17 Year
  Sex: Female
  Weight: 75 kg

DRUGS (4)
  1. MOBIC [Suspect]
     Active Substance: MELOXICAM
     Dosage: 15 MG, DAILY
     Dates: start: 201508, end: 20160704
  2. ENBREL [Concomitant]
     Active Substance: ETANERCEPT
     Dosage: 50 MG/ML, 1 INJECTION WEEKLY
  3. MOBIC [Suspect]
     Active Substance: MELOXICAM
     Dosage: 7.5 MG, AT NIGHT WITH FOOD
  4. CELEBREX [Suspect]
     Active Substance: CELECOXIB
     Dosage: 200 MG, 1 CAPSULE IN THE MORNING
     Dates: start: 201508, end: 20160704

REACTIONS (6)
  - Back pain [Unknown]
  - Activities of daily living impaired [Unknown]
  - Neck pain [Unknown]
  - Drug ineffective [Unknown]
  - Iridocyclitis [Unknown]
  - Sacroiliitis [Unknown]
